FAERS Safety Report 11705489 (Version 2)
Quarter: 2016Q2

REPORT INFORMATION
  Report Type: Spontaneous
  Country: PT (occurrence: PT)
  Receive Date: 20151106
  Receipt Date: 20160530
  Transmission Date: 20160815
  Serious: Yes (Disabling)
  Sender: FDA-Public Use
  Company Number: PT-ACTAVIS-2015-23527

PATIENT
  Age: 30 Year
  Sex: Female

DRUGS (3)
  1. ZOLADEX [Suspect]
     Active Substance: GOSERELIN ACETATE
     Indication: BREAST CANCER
     Dosage: 3.8 MG, EVERY 28 DAYS, CYCLICAL
     Route: 058
     Dates: start: 201302, end: 201501
  2. EUTIROX [Concomitant]
     Active Substance: LEVOTHYROXINE SODIUM
     Indication: HYPOTHYROIDISM
     Dosage: 2.5 ?G, UNKNOWN
     Route: 048
  3. LETROZOL ACTAVIS [Suspect]
     Active Substance: LETROZOLE
     Indication: BREAST CANCER
     Dosage: 2.5 MG, DAILY
     Route: 048
     Dates: start: 201302, end: 201501

REACTIONS (1)
  - Infertility female [Unknown]

NARRATIVE: CASE EVENT DATE: 201501
